FAERS Safety Report 22743368 (Version 2)
Quarter: 2024Q1

REPORT INFORMATION
  Report Type: Spontaneous
  Country: ES (occurrence: ES)
  Receive Date: 20230724
  Receipt Date: 20240105
  Transmission Date: 20240409
  Serious: Yes (Hospitalization, Other)
  Sender: FDA-Public Use
  Company Number: ES-CHEPLA-2023007565

PATIENT
  Age: 40 Year
  Sex: Male

DRUGS (29)
  1. FENTANYL [Suspect]
     Active Substance: FENTANYL\FENTANYL CITRATE
     Indication: New onset refractory status epilepticus
     Route: 065
  2. TOPAMAX [Suspect]
     Active Substance: TOPIRAMATE
     Indication: New onset refractory status epilepticus
     Route: 065
  3. PHENOBARBITAL [Suspect]
     Active Substance: PHENOBARBITAL
     Indication: New onset refractory status epilepticus
     Route: 065
  4. PHENOBARBITAL [Suspect]
     Active Substance: PHENOBARBITAL
     Indication: Status epilepticus
  5. PENTOTHAL [Suspect]
     Active Substance: THIOPENTAL SODIUM
     Indication: New onset refractory status epilepticus
     Route: 065
  6. PENTOTHAL [Suspect]
     Active Substance: THIOPENTAL SODIUM
     Indication: Anaesthesia
  7. PROPOFOL [Suspect]
     Active Substance: PROPOFOL
     Indication: New onset refractory status epilepticus
     Route: 065
  8. PROPOFOL [Suspect]
     Active Substance: PROPOFOL
     Indication: Anaesthesia
  9. PERAMPANEL [Suspect]
     Active Substance: PERAMPANEL
     Indication: New onset refractory status epilepticus
     Route: 065
  10. PHENYTOIN [Suspect]
     Active Substance: PHENYTOIN
     Indication: New onset refractory status epilepticus
     Route: 065
  11. PHENYTOIN [Suspect]
     Active Substance: PHENYTOIN
     Indication: Status epilepticus
  12. MIDAZOLAM [Suspect]
     Active Substance: MIDAZOLAM
     Indication: New onset refractory status epilepticus
     Route: 042
  13. MIDAZOLAM [Suspect]
     Active Substance: MIDAZOLAM
     Indication: Generalised tonic-clonic seizure
  14. LACOSAMIDE [Suspect]
     Active Substance: LACOSAMIDE
     Indication: New onset refractory status epilepticus
     Route: 065
  15. LACOSAMIDE [Suspect]
     Active Substance: LACOSAMIDE
     Indication: Status epilepticus
  16. VALPROIC ACID [Suspect]
     Active Substance: VALPROIC ACID
     Indication: New onset refractory status epilepticus
     Route: 065
  17. LEVETIRACETAM [Suspect]
     Active Substance: LEVETIRACETAM
     Indication: New onset refractory status epilepticus
     Route: 065
  18. LEVETIRACETAM [Suspect]
     Active Substance: LEVETIRACETAM
     Indication: Status epilepticus
  19. KETAMINE [Suspect]
     Active Substance: KETAMINE
     Indication: New onset refractory status epilepticus
     Route: 042
  20. KETAMINE [Suspect]
     Active Substance: KETAMINE
     Indication: Anaesthesia
  21. CARBAMAZEPINE [Suspect]
     Active Substance: CARBAMAZEPINE
     Indication: New onset refractory status epilepticus
     Route: 065
  22. COVID-19 VACCINE [Concomitant]
     Indication: COVID-19 immunisation
     Dosage: 21 DAYS EARLIER
  23. ACYCLOVIR [Concomitant]
     Active Substance: ACYCLOVIR
     Indication: Infection prophylaxis
  24. AMPICILLIN [Concomitant]
     Active Substance: AMPICILLIN
     Indication: Infection prophylaxis
  25. CEFTRIAXONE [Concomitant]
     Active Substance: CEFTRIAXONE\CEFTRIAXONE SODIUM
     Indication: Infection prophylaxis
     Route: 065
  26. CEFUROXIME [Concomitant]
     Active Substance: CEFUROXIME
     Indication: Urinary tract infection
     Route: 065
  27. RITUXIMAB [Concomitant]
     Active Substance: RITUXIMAB
     Indication: Radioimmunotherapy
  28. RITUXIMAB [Concomitant]
     Active Substance: RITUXIMAB
     Indication: Immunosuppression
  29. CLOBAZAM [Concomitant]
     Active Substance: CLOBAZAM
     Indication: Status epilepticus

REACTIONS (6)
  - Generalised tonic-clonic seizure [Recovering/Resolving]
  - Quadriparesis [Unknown]
  - Drug ineffective [Unknown]
  - Polyneuropathy [Unknown]
  - Nervous system disorder [Unknown]
  - Off label use [Unknown]
